FAERS Safety Report 12772420 (Version 2)
Quarter: 2017Q1

REPORT INFORMATION
  Report Type: Report from Study
  Country: None (occurrence: CH)
  Receive Date: 20160922
  Receipt Date: 20170117
  Transmission Date: 20170428
  Serious: Yes (Hospitalization)
  Sender: FDA-Public Use
  Company Number: CH-ABBVIE-16K-151-1733243-00

PATIENT
  Sex: Male

DRUGS (1)
  1. DUODOPA [Suspect]
     Active Substance: CARBIDOPA\LEVODOPA
     Indication: PARKINSON^S DISEASE
     Dosage: MD: 12ML, CRD: 2.8ML/H, ED: 2.0ML, 16H THERAPY
     Route: 050

REACTIONS (7)
  - Dysphagia [Unknown]
  - Hallucination [Unknown]
  - Pneumonia [Unknown]
  - Bedridden [Unknown]
  - Nutritional condition abnormal [Unknown]
  - Cognitive disorder [Unknown]
  - General physical health deterioration [Unknown]
